FAERS Safety Report 11181394 (Version 2)
Quarter: 2015Q2

REPORT INFORMATION
  Report Type: Spontaneous
  Country: JP (occurrence: JP)
  Receive Date: 20150611
  Receipt Date: 20150612
  Transmission Date: 20150821
  Serious: Yes (Other)
  Sender: FDA-Public Use
  Company Number: JP-BAYER-2015-303680

PATIENT
  Age: 59 Year
  Sex: Male

DRUGS (1)
  1. BAYASPIRIN [Suspect]
     Active Substance: ASPIRIN
     Dosage: UNK
     Route: 048

REACTIONS (6)
  - Spinal epidural haematoma [Recovering/Resolving]
  - Anorectal disorder [Recovering/Resolving]
  - Quadriplegia [Recovering/Resolving]
  - Neck pain [Recovering/Resolving]
  - Bladder disorder [Recovering/Resolving]
  - Musculoskeletal pain [Recovering/Resolving]
